FAERS Safety Report 13465086 (Version 4)
Quarter: 2020Q4

REPORT INFORMATION
  Report Type: Spontaneous
  Country: DE (occurrence: DE)
  Receive Date: 20170421
  Receipt Date: 20201219
  Transmission Date: 20210113
  Serious: Yes (Other)
  Sender: FDA-Public Use
  Company Number: DE-TORRENT-00006374

PATIENT
  Age: 65 Year
  Sex: Female

DRUGS (8)
  1. CLOBAZAM. [Suspect]
     Active Substance: CLOBAZAM
     Indication: PARTIAL SEIZURES
     Dosage: 5 MG/D P.R.N
  2. ARTESUNATE [Interacting]
     Active Substance: ARTESUNATE
     Indication: MALARIA
     Dosage: 200 MG, DAILY
     Dates: start: 20150920, end: 20151020
  3. TEMOZOLOMIDE. [Interacting]
     Active Substance: TEMOZOLOMIDE
     Indication: GLIOBLASTOMA MULTIFORME
     Route: 048
  4. LEVETIRACETAM. [Suspect]
     Active Substance: LEVETIRACETAM
     Indication: PARTIAL SEIZURES
     Dosage: DAILY DOSE: 1000 MG MILLIGRAM(S) EVERY DAY
  5. VALPROIC ACID. [Suspect]
     Active Substance: VALPROIC ACID
     Indication: PARTIAL SEIZURES
  6. DIVALPROEX SODIUM. [Interacting]
     Active Substance: DIVALPROEX SODIUM
     Indication: PRODUCT USED FOR UNKNOWN INDICATION
  7. ONDANSETRON [Suspect]
     Active Substance: ONDANSETRON
     Indication: NAUSEA
     Dosage: DAILY DOSE: 8 MG MILLIGRAM(S) EVERY DAY
  8. LORAZEPAM. [Suspect]
     Active Substance: LORAZEPAM
     Indication: PARTIAL SEIZURES
     Dosage: 1 MG MILLIGRAM(S) EVERY DAY

REACTIONS (16)
  - Asthenia [Recovered/Resolved]
  - Glioblastoma multiforme [Recovered/Resolved]
  - Depressed mood [Recovered/Resolved]
  - Chest pain [Recovering/Resolving]
  - Monocyte count decreased [Recovered/Resolved]
  - Nausea [Recovered/Resolved]
  - Drug interaction [Unknown]
  - Intentional product misuse [Unknown]
  - Drug-induced liver injury [Recovered/Resolved]
  - Fatigue [Recovered/Resolved]
  - Condition aggravated [Recovered/Resolved]
  - Product use in unapproved indication [Unknown]
  - Weight decreased [Recovered/Resolved]
  - Off label use [Unknown]
  - Dyspepsia [Recovered/Resolved]
  - Leukopenia [Unknown]

NARRATIVE: CASE EVENT DATE: 201509
